FAERS Safety Report 18793822 (Version 1)
Quarter: 2021Q1

REPORT INFORMATION
  Report Type: Spontaneous
  Country: FR (occurrence: FR)
  Receive Date: 20210127
  Receipt Date: 20210127
  Transmission Date: 20210419
  Serious: Yes (Hospitalization)
  Sender: FDA-Public Use
  Company Number: FR-ROCHE-2757770

PATIENT
  Age: 58 Year
  Sex: Male

DRUGS (5)
  1. VALIUM [Suspect]
     Active Substance: DIAZEPAM
     Indication: ENCEPHALOPATHY
     Dosage: DATE OF THE MOST RECENT DOSE RECEIVED PRIOR TO THE EVENTS ONSET: 08/JUL/2020
     Route: 054
     Dates: start: 20200708
  2. ATROVENT [Concomitant]
     Active Substance: IPRATROPIUM BROMIDE
     Route: 055
     Dates: start: 20200706, end: 20200829
  3. NORSET [Concomitant]
     Active Substance: MIRTAZAPINE
     Dosage: COATED TABLET
     Route: 048
     Dates: start: 20200703, end: 20200717
  4. NOCTAMIDE [Concomitant]
     Active Substance: LORMETAZEPAM
     Dosage: BREAKABLE TABLET
     Route: 048
     Dates: start: 20200703, end: 20200917
  5. URBANYL [Suspect]
     Active Substance: CLOBAZAM
     Indication: ENCEPHALOPATHY
     Dosage: DATE OF THE MOST RECENT DOSE RECEIVED PRIOR TO THE EVENTS ONSET: 09/JUL/2020
     Route: 048
     Dates: start: 20200709

REACTIONS (2)
  - Respiratory distress [Recovering/Resolving]
  - Altered state of consciousness [Recovering/Resolving]

NARRATIVE: CASE EVENT DATE: 20200710
